FAERS Safety Report 9066107 (Version 1)
Quarter: 2013Q1

REPORT INFORMATION
  Report Type: Report from Study
  Country: US (occurrence: US)
  Receive Date: 20130130
  Receipt Date: 20130130
  Transmission Date: 20140127
  Serious: No
  Sender: FDA-Public Use
  Company Number: US-ABBOTT-12P-163-0976054-00

PATIENT
  Age: 68 Year
  Sex: Female
  Weight: 79.45 kg

DRUGS (7)
  1. HUMIRA [Suspect]
     Indication: CROHN^S DISEASE
     Dosage: ONCE
     Dates: start: 20120609, end: 20120609
  2. HUMIRA [Suspect]
     Dosage: ONCE
     Dates: start: 20120624, end: 20120624
  3. HUMIRA [Suspect]
     Dates: start: 20120709, end: 20120808
  4. VITAMIN B12 [Concomitant]
     Indication: VITAMIN SUPPLEMENTATION
  5. FOLIC ACID [Concomitant]
     Indication: VITAMIN SUPPLEMENTATION
  6. IMURAN [Concomitant]
     Indication: CROHN^S DISEASE
  7. JUICE PLUS SUPPLEMENT [Concomitant]
     Indication: CROHN^S DISEASE

REACTIONS (4)
  - Dry mouth [Not Recovered/Not Resolved]
  - Stomatitis [Not Recovered/Not Resolved]
  - Oral fungal infection [Not Recovered/Not Resolved]
  - Pain [Not Recovered/Not Resolved]
